FAERS Safety Report 18063865 (Version 1)
Quarter: 2020Q3

REPORT INFORMATION
  Report Type: Report from Study
  Country: US (occurrence: US)
  Receive Date: 20200724
  Receipt Date: 20200724
  Transmission Date: 20201103
  Serious: Yes (Hospitalization)
  Sender: FDA-Public Use
  Company Number: US-ASTRAZENECA-2020SE91192

PATIENT
  Age: 84 Year
  Sex: Female

DRUGS (10)
  1. ATORVASTATIN [Concomitant]
     Active Substance: ATORVASTATIN
  2. LYNPARZA [Suspect]
     Active Substance: OLAPARIB
     Indication: OVARIAN CANCER
     Route: 048
     Dates: start: 20200613, end: 20200704
  3. LOSARTAN?HCTZ [Concomitant]
     Active Substance: HYDROCHLOROTHIAZIDE\LOSARTAN
  4. POTASSIUM [Concomitant]
     Active Substance: POTASSIUM
  5. FUROSEMIDE. [Concomitant]
     Active Substance: FUROSEMIDE
  6. ALPRAZOLAM. [Concomitant]
     Active Substance: ALPRAZOLAM
  7. ASPIRIN. [Concomitant]
     Active Substance: ASPIRIN
  8. MULTIPLE VITAMINS [Concomitant]
     Active Substance: VITAMINS
  9. ELIQUIS [Concomitant]
     Active Substance: APIXABAN
  10. TOPROL XL [Concomitant]
     Active Substance: METOPROLOL SUCCINATE

REACTIONS (3)
  - Cardiac disorder [Unknown]
  - Heart rate abnormal [Unknown]
  - Hypertension [Unknown]
